FAERS Safety Report 6741777-X (Version None)
Quarter: 2010Q2

REPORT INFORMATION
  Report Type: 
  Country: None (occurrence: None)
  Receive Date: 20100526
  Receipt Date: 20100514
  Transmission Date: 20101027
  Serious: Yes (Other)
  Sender: FDA-Public Use
  Company Number: US-ROCHE-695830

PATIENT
  Age: 70 Year
  Sex: Female
  Weight: 61.7 kg

DRUGS (6)
  1. BONIVA [Suspect]
     Indication: OSTEOPENIA
     Route: 048
     Dates: start: 20080301, end: 20100327
  2. SYNTHROID [Concomitant]
  3. OMEPRAZOLE [Concomitant]
  4. CALCIUM/VITAMIN D [Concomitant]
  5. VITAMIN E [Concomitant]
  6. M.V.I. [Concomitant]

REACTIONS (11)
  - ABDOMINAL DISCOMFORT [None]
  - BACK PAIN [None]
  - CYST [None]
  - DYSPHAGIA [None]
  - FLATULENCE [None]
  - GASTRIC DISORDER [None]
  - INSOMNIA [None]
  - MUSCULOSKELETAL STIFFNESS [None]
  - ODYNOPHAGIA [None]
  - SENSATION OF FOREIGN BODY [None]
  - THROAT TIGHTNESS [None]
